FAERS Safety Report 7060248-7 (Version None)
Quarter: 2010Q4

REPORT INFORMATION
  Report Type: 
  Country: None (occurrence: None)
  Receive Date: 20101025
  Receipt Date: 20101014
  Transmission Date: 20110411
  Serious: Yes (Other)
  Sender: FDA-Public Use
  Company Number: JP-ASTRAZENECA-2010SE49845

PATIENT
  Sex: Female

DRUGS (6)
  1. SEROQUEL [Suspect]
     Route: 048
     Dates: end: 20101006
  2. SEROQUEL [Suspect]
     Route: 048
     Dates: start: 20101007
  3. TETRAMIDE [Concomitant]
  4. SERTRALINE HYDROCHLORIDE [Concomitant]
  5. RHYTHMY [Concomitant]
  6. AMOBAN [Concomitant]

REACTIONS (2)
  - CONVULSION [None]
  - LOSS OF CONSCIOUSNESS [None]
